FAERS Safety Report 23454062 (Version 1)
Quarter: 2024Q1

REPORT INFORMATION
  Report Type: Report from Study
  Country: US (occurrence: US)
  Receive Date: 20240130
  Receipt Date: 20240130
  Transmission Date: 20240410
  Serious: Yes (Other)
  Sender: FDA-Public Use
  Company Number: US-ABBVIE-4706501

PATIENT
  Sex: Female

DRUGS (1)
  1. HUMIRA [Suspect]
     Active Substance: ADALIMUMAB
     Indication: Hidradenitis
     Dosage: FORM STRENGTH:40 MILLIGRAM ?CITRATE FREE
     Route: 058
     Dates: start: 20220830

REACTIONS (3)
  - Papule [Recovering/Resolving]
  - Hidradenitis [Recovering/Resolving]
  - Pain [Recovering/Resolving]
